FAERS Safety Report 5988955-5 (Version None)
Quarter: 2008Q4

REPORT INFORMATION
  Report Type: 
  Country: None (occurrence: None)
  Receive Date: 20081204
  Receipt Date: 20081125
  Transmission Date: 20090506
  Serious: Yes (Other)
  Sender: FDA-Public Use
  Company Number: TPG2008A01418

PATIENT
  Age: 57 Year
  Sex: Male

DRUGS (5)
  1. COMPETACT (PIOGLITAZONE HYDROCHLORIDE,METFORMIN HYDROCHLORIDE) [Suspect]
     Indication: TYPE 2 DIABETES MELLITUS
     Dosage: PIOGLITAZONE 30 MG/METFORMIN 1700 MG PER ORAL
     Route: 048
     Dates: start: 20080313, end: 20080319
  2. ACETYLSALICYLIC ACID SRT [Concomitant]
  3. OLMESARTAN MEDOXOMIL [Concomitant]
  4. AGENTS ACTING ON RENIN-ANGIOTENSIN SYSTEM (RENIN-ANGIOTENSIN SYSTEM, A [Concomitant]
  5. ANTITHROMBOTIC AGENTS (ANTITHROMEOTIC AGENTS) [Concomitant]

REACTIONS (3)
  - FLANK PAIN [None]
  - HAEMATURIA [None]
  - RENAL PAIN [None]
